FAERS Safety Report 7753352-9 (Version None)
Quarter: 2011Q3

REPORT INFORMATION
  Report Type: 
  Country: None (occurrence: None)
  Receive Date: 20110915
  Receipt Date: 20110906
  Transmission Date: 20111222
  Serious: Yes (Other)
  Sender: FDA-Public Use
  Company Number: AU-ASTRAZENECA-2011SE48383

PATIENT
  Age: 11 Year
  Sex: Female

DRUGS (2)
  1. SUXAMETHONIUM [Suspect]
     Dosage: 100 MG/2 ML
     Dates: start: 20110801
  2. PROPOFOL [Suspect]
     Route: 042
     Dates: start: 20110801

REACTIONS (1)
  - RASH MACULAR [None]
